FAERS Safety Report 15589734 (Version 2)
Quarter: 2018Q4

REPORT INFORMATION
  Report Type: Spontaneous
  Country: US (occurrence: US)
  Receive Date: 20181106
  Receipt Date: 20181121
  Transmission Date: 20190205
  Serious: Yes (Other)
  Sender: FDA-Public Use
  Company Number: US-BAUSCH-BL-2018-030318

PATIENT
  Sex: Male
  Weight: 84.9 kg

DRUGS (3)
  1. XENAZINE [Suspect]
     Active Substance: TETRABENAZINE
     Indication: DYSKINESIA
     Dosage: 125 MG/DAY (37.5MG IN THE MORNING, 50MG MID-DAY, 37.5MG AT NIGHT ). FOR THE PAST 5 YEARS
     Route: 065
     Dates: start: 2013
  2. FLUVOXAMINE [Suspect]
     Active Substance: FLUVOXAMINE
     Indication: PRODUCT USED FOR UNKNOWN INDICATION
     Dosage: FOR THE LAST 10 YEARS
     Route: 065
  3. XENAZINE [Suspect]
     Active Substance: TETRABENAZINE
     Indication: OFF LABEL USE

REACTIONS (3)
  - Prescribed overdose [Not Recovered/Not Resolved]
  - Lipoma [Recovered/Resolved]
  - Drug effective for unapproved indication [Not Recovered/Not Resolved]

NARRATIVE: CASE EVENT DATE: 2013
